FAERS Safety Report 17082242 (Version 1)
Quarter: 2019Q4

REPORT INFORMATION
  Report Type: Spontaneous
  Country: BR (occurrence: BR)
  Receive Date: 20191127
  Receipt Date: 20191127
  Transmission Date: 20200122
  Serious: Yes (Hospitalization)
  Sender: FDA-Public Use
  Company Number: BR-PFIZER INC-2019484969

PATIENT
  Age: 33 Year
  Sex: Female

DRUGS (1)
  1. SAYANA [Suspect]
     Active Substance: MEDROXYPROGESTERONE
     Indication: MENSTRUAL DISORDER
     Dosage: 1 DF, MONTHLY (ONE APPLICATION PER MONTH)
     Dates: start: 20190923

REACTIONS (14)
  - Feeling abnormal [Recovering/Resolving]
  - Fall [Unknown]
  - Dizziness [Unknown]
  - Pyrexia [Unknown]
  - Drug ineffective for unapproved indication [Unknown]
  - Dyspnoea [Recovering/Resolving]
  - Retching [Unknown]
  - Tooth disorder [Unknown]
  - Off label use [Unknown]
  - Headache [Unknown]
  - Diarrhoea [Recovering/Resolving]
  - Nausea [Recovering/Resolving]
  - Nervousness [Unknown]
  - Infection [Unknown]

NARRATIVE: CASE EVENT DATE: 20190923
